FAERS Safety Report 8078959-3 (Version None)
Quarter: 2012Q1

REPORT INFORMATION
  Report Type: 
  Country: None (occurrence: None)
  Receive Date: 20120124
  Receipt Date: 20120109
  Transmission Date: 20120608
  Serious: Yes (Death, Other)
  Sender: FDA-Public Use
  Company Number: DSA_81461_2005

PATIENT
  Age: 45 Year
  Sex: Female
  Weight: 70.5343 kg

DRUGS (20)
  1. XYREM [Suspect]
     Indication: FIBROMYALGIA
     Dosage: 6 GM (3 GM, 2 IN 1 D), ORAL
     Route: 048
     Dates: start: 20050707, end: 20050802
  2. XYREM [Suspect]
     Indication: SLEEP DISORDER
     Dosage: 6 GM (3 GM, 2 IN 1 D), ORAL
     Route: 048
     Dates: start: 20050707, end: 20050802
  3. MUCOSAGEN [Concomitant]
  4. NEURONTIN [Concomitant]
  5. KLONOPIN [Concomitant]
  6. MAGNESIUM WITH POTASSIUM ASPARTATE [Concomitant]
  7. OTHER AND UNSPECIFIED DRUGS, MEDICAMENTS, AND BIOLOGICAL SUBSTANCES [Suspect]
     Indication: PRODUCT USED FOR UNKNOWN INDICATION
  8. HYDROCODONE BITARTRATE [Concomitant]
  9. LORTAB [Concomitant]
  10. MULTI-VITAMIN [Concomitant]
  11. ASTELIN [Concomitant]
  12. TAURINE [Concomitant]
  13. PROCAINE HCL [Concomitant]
  14. PROMETRIUM (TABLETS) [Concomitant]
  15. TESTOSTERONE [Concomitant]
  16. DOXEPIN HCL [Concomitant]
  17. EFFEXOR [Concomitant]
  18. SOMA [Concomitant]
  19. VICOPROFEN [Concomitant]
  20. CELEXA [Concomitant]

REACTIONS (4)
  - CARDIAC ARREST [None]
  - CARDIAC DISORDER [None]
  - LOSS OF CONSCIOUSNESS [None]
  - ACCIDENTAL POISONING [None]
